FAERS Safety Report 7777016-0 (Version None)
Quarter: 2011Q3

REPORT INFORMATION
  Report Type: 
  Country: None (occurrence: None)
  Receive Date: 20110926
  Receipt Date: 20110926
  Transmission Date: 20111222
  Serious: Yes (Other)
  Sender: FDA-Public Use
  Company Number: None

PATIENT
  Sex: Female
  Weight: 104.32 kg

DRUGS (1)
  1. SAPHRIS [Suspect]
     Indication: PSYCHOTIC DISORDER
     Dates: start: 20110902, end: 20110903

REACTIONS (6)
  - SOMNOLENCE [None]
  - DYSPNOEA [None]
  - ANXIETY [None]
  - THROAT TIGHTNESS [None]
  - DYSPHAGIA [None]
  - TOOTHACHE [None]
